FAERS Safety Report 25311269 (Version 1)
Quarter: 2025Q2

REPORT INFORMATION
  Report Type: Spontaneous
  Country: US (occurrence: US)
  Receive Date: 20250514
  Receipt Date: 20250514
  Transmission Date: 20250716
  Serious: Yes (Hospitalization, Other)
  Sender: FDC LIMITED
  Company Number: US-FDC-2025USLIT00195

PATIENT
  Age: 68 Year
  Sex: Female

DRUGS (1)
  1. CIPROFLOXACIN [Suspect]
     Active Substance: CIPROFLOXACIN
     Indication: Periodontitis
     Route: 065

REACTIONS (2)
  - Colitis ischaemic [Recovered/Resolved]
  - Product use in unapproved indication [Unknown]
